FAERS Safety Report 24425623 (Version 2)
Quarter: 2024Q4

REPORT INFORMATION
  Report Type: Spontaneous
  Country: US (occurrence: US)
  Receive Date: 20241011
  Receipt Date: 20241111
  Transmission Date: 20250115
  Serious: No
  Sender: JOHNSON AND JOHNSON
  Company Number: US-JNJFOC-20241004431

PATIENT
  Age: 87 Year
  Sex: Male
  Weight: 76 kg

DRUGS (3)
  1. AKEEGA [Suspect]
     Active Substance: ABIRATERONE ACETATE\NIRAPARIB TOSYLATE MONOHYDRATE
     Indication: Prostate cancer
     Dosage: STRENGTH- 100/500 (MG MILLIGRAM(S)
     Route: 048
     Dates: start: 202409
  2. LUPRON [Concomitant]
     Active Substance: LEUPROLIDE ACETATE
  3. NAPROXEN [Concomitant]
     Active Substance: NAPROXEN

REACTIONS (3)
  - Constipation [Not Recovered/Not Resolved]
  - Feeling abnormal [Not Recovered/Not Resolved]
  - Dizziness [Unknown]

NARRATIVE: CASE EVENT DATE: 20240901
